FAERS Safety Report 9512349 (Version 1)
Quarter: 2013Q3

REPORT INFORMATION
  Report Type: Spontaneous
  Country: US (occurrence: US)
  Receive Date: 20130910
  Receipt Date: 20130910
  Transmission Date: 20140515
  Serious: No
  Sender: FDA-Public Use
  Company Number: -SAAVPROD-BMS19014513

PATIENT
  Sex: Female

DRUGS (1)
  1. IRBESARTAN TABS [Suspect]
     Indication: BLOOD PRESSURE
     Dates: start: 2012, end: 2012

REACTIONS (3)
  - Ear pruritus [Unknown]
  - Flushing [Unknown]
  - Drug dispensing error [Unknown]
